FAERS Safety Report 11801347 (Version 1)
Quarter: 2015Q4

REPORT INFORMATION
  Report Type: Spontaneous
  Country: GB (occurrence: GB)
  Receive Date: 20151204
  Receipt Date: 20151204
  Transmission Date: 20160305
  Serious: Yes (Hospitalization)
  Sender: FDA-Public Use
  Company Number: PHFR2015GB009189

PATIENT
  Age: 36 Year
  Sex: Female

DRUGS (1)
  1. OXCARBAZEPINE. [Suspect]
     Active Substance: OXCARBAZEPINE
     Indication: EPILEPSY
     Dosage: 600 MG BID
     Route: 048

REACTIONS (3)
  - Blood sodium decreased [Not Recovered/Not Resolved]
  - Epilepsy [Unknown]
  - Circulatory collapse [Unknown]
